FAERS Safety Report 14940053 (Version 3)
Quarter: 2018Q3

REPORT INFORMATION
  Report Type: Spontaneous
  Country: KR (occurrence: KR)
  Receive Date: 20180525
  Receipt Date: 20180801
  Transmission Date: 20181010
  Serious: Yes (Hospitalization, Other)
  Sender: FDA-Public Use
  Company Number: US-ASTRAZENECA-2018SE68942

PATIENT
  Age: 57 Year
  Sex: Female
  Weight: 56 kg

DRUGS (9)
  1. ESOMEPRAZOLE [Suspect]
     Active Substance: ESOMEPRAZOLE
     Indication: NON-SMALL CELL LUNG CANCER
     Route: 048
     Dates: start: 20170119, end: 20170123
  2. ITRACONAZOLE. [Suspect]
     Active Substance: ITRACONAZOLE
     Indication: NON-SMALL CELL LUNG CANCER
     Route: 048
     Dates: start: 20170127, end: 20170131
  3. PERIDEX [Concomitant]
     Active Substance: CHLORHEXIDINE GLUCONATE
     Indication: STOMATITIS
     Dosage: UNK
     Dates: start: 20180420
  4. EBASTEL [Concomitant]
     Active Substance: EBASTINE
     Indication: PRURITUS
     Dosage: UNK
     Dates: start: 20180420
  5. LOPERAMIDE [Concomitant]
     Active Substance: LOPERAMIDE
     Indication: DIARRHOEA
     Dosage: UNK
     Dates: start: 20180420
  6. STILNOX [Concomitant]
     Active Substance: ZOLPIDEM TARTRATE
     Indication: INSOMNIA
     Dosage: UNK
     Dates: start: 20170118
  7. MEGESTROL ACETATE. [Concomitant]
     Active Substance: MEGESTROL ACETATE
     Indication: DECREASED APPETITE
     Dosage: UNK
     Dates: start: 20180510
  8. RHINATHIOL [Concomitant]
     Active Substance: CARBOCYSTEINE
     Indication: BLOOD CREATININE INCREASED
     Dosage: UNK
     Dates: start: 20180213
  9. MINOCIN [Concomitant]
     Active Substance: MINOCYCLINE HYDROCHLORIDE
     Indication: PARONYCHIA
     Dosage: UNK
     Dates: start: 20170217

REACTIONS (2)
  - Congestive cardiomyopathy [Unknown]
  - Cardiac failure [Recovering/Resolving]

NARRATIVE: CASE EVENT DATE: 20180510
